FAERS Safety Report 16774613 (Version 1)
Quarter: 2019Q3

REPORT INFORMATION
  Report Type: Spontaneous
  Country: DE (occurrence: DE)
  Receive Date: 20190905
  Receipt Date: 20190905
  Transmission Date: 20191005
  Serious: Yes (Other)
  Sender: FDA-Public Use
  Company Number: DE-HORMOSAN PHARMA GMBH-2019-05693

PATIENT
  Age: 71 Year
  Sex: Male
  Weight: 88 kg

DRUGS (6)
  1. TADALAFIL-HORMOSAN 5 MG FILMTABLETTEN [Suspect]
     Active Substance: TADALAFIL
     Indication: DYSURIA
     Dosage: 5 MILLIGRAM, QD
     Route: 065
     Dates: start: 2016, end: 2019
  2. CANDESARTAN. [Concomitant]
     Active Substance: CANDESARTAN
     Indication: BLOOD PRESSURE ABNORMAL
     Dosage: 8 MILLIGRAM, QD
     Route: 065
  3. ALLOPURINOL. [Concomitant]
     Active Substance: ALLOPURINOL
     Indication: BLOOD URIC ACID ABNORMAL
     Dosage: 300 MILLIGRAM, QD
     Route: 065
  4. XALACOM [Concomitant]
     Active Substance: LATANOPROST\TIMOLOL MALEATE
     Indication: INTRAOCULAR PRESSURE INCREASED
     Dosage: 1 DROP, QD
     Route: 065
  5. THYROXINE [Concomitant]
     Active Substance: LEVOTHYROXINE
     Indication: THYROID DISORDER
     Dosage: 100 MILLIGRAM, QD
     Route: 065
  6. CIALIS [Suspect]
     Active Substance: TADALAFIL
     Indication: DYSURIA
     Dosage: UNK
     Route: 065

REACTIONS (1)
  - Eye haemorrhage [Recovered/Resolved]

NARRATIVE: CASE EVENT DATE: 2017
